FAERS Safety Report 7250517-X (Version None)
Quarter: 2011Q1

REPORT INFORMATION
  Report Type: 
  Country: None (occurrence: None)
  Receive Date: 20110128
  Receipt Date: 20110121
  Transmission Date: 20110831
  Serious: Yes (Hospitalization)
  Sender: FDA-Public Use
  Company Number: PHHY2011NL01893

PATIENT
  Sex: Male

DRUGS (3)
  1. ZOMETA [Suspect]
     Dosage: UNK
     Dates: start: 20101129
  2. ZOMETA [Suspect]
     Indication: BREAST CANCER METASTATIC
     Dosage: 4 MG/ 5 ML
     Route: 042
     Dates: start: 20080211
  3. ZOMETA [Suspect]
     Dosage: UNK
     Dates: start: 20101021

REACTIONS (3)
  - FLUID RETENTION [None]
  - CHEST DISCOMFORT [None]
  - BLOOD GLUCOSE INCREASED [None]
